FAERS Safety Report 21063888 (Version 2)
Quarter: 2022Q3

REPORT INFORMATION
  Report Type: Report from Study
  Country: CA (occurrence: CA)
  Receive Date: 20220711
  Receipt Date: 20220808
  Transmission Date: 20221027
  Serious: Yes (Other)
  Sender: FDA-Public Use
  Company Number: CA-JNJFOC-20220706638

PATIENT
  Age: 28 Year
  Sex: Female
  Weight: 112 kg

DRUGS (1)
  1. SIMPONI [Suspect]
     Active Substance: GOLIMUMAB
     Indication: Psoriatic arthropathy
     Route: 041
     Dates: start: 20160812

REACTIONS (1)
  - Lyme disease [Recovered/Resolved]

NARRATIVE: CASE EVENT DATE: 20220701
